FAERS Safety Report 18765124 (Version 4)
Quarter: 2021Q1

REPORT INFORMATION
  Report Type: Report from Study
  Country: None (occurrence: US)
  Receive Date: 20210121
  Receipt Date: 20210227
  Transmission Date: 20210419
  Serious: Yes (Hospitalization, Other)
  Sender: FDA-Public Use
  Company Number: US-ABBVIE-21K-163-3725605-00

PATIENT
  Age: 17 Year
  Sex: Male
  Weight: 59.93 kg

DRUGS (5)
  1. METHOTREXATE. [Concomitant]
     Active Substance: METHOTREXATE
     Indication: PRODUCT USED FOR UNKNOWN INDICATION
  2. HUMIRA [Suspect]
     Active Substance: ADALIMUMAB
     Route: 058
     Dates: start: 20210205
  3. HUMIRA [Suspect]
     Active Substance: ADALIMUMAB
     Indication: CHRONIC RECURRENT MULTIFOCAL OSTEOMYELITIS
     Route: 058
     Dates: start: 20210108, end: 202102
  4. HUMIRA [Suspect]
     Active Substance: ADALIMUMAB
     Indication: CHRONIC RECURRENT MULTIFOCAL OSTEOMYELITIS
     Route: 058
     Dates: start: 201810, end: 202008
  5. ADVIL [Concomitant]
     Active Substance: IBUPROFEN
     Indication: PAIN

REACTIONS (19)
  - Gait disturbance [Recovered/Resolved]
  - Incorrect dose administered [Recovered/Resolved]
  - Mobility decreased [Recovered/Resolved]
  - Inflammation [Recovering/Resolving]
  - Mobility decreased [Recovered/Resolved]
  - Back pain [Recovered/Resolved]
  - Pain in extremity [Recovered/Resolved]
  - Device issue [Recovered/Resolved]
  - Gait inability [Recovered/Resolved]
  - Off label use [Recovered/Resolved]
  - Pallor [Recovered/Resolved]
  - Bone lesion [Unknown]
  - Chronic recurrent multifocal osteomyelitis [Unknown]
  - Feeling abnormal [Recovered/Resolved]
  - Pain [Recovered/Resolved]
  - Bone marrow oedema [Unknown]
  - Injection site haemorrhage [Recovered/Resolved]
  - Asthenia [Recovered/Resolved]
  - Chills [Recovered/Resolved]

NARRATIVE: CASE EVENT DATE: 202011
